FAERS Safety Report 4884731-5 (Version None)
Quarter: 2006Q1

REPORT INFORMATION
  Report Type: 
  Country: None (occurrence: None)
  Receive Date: 20060119
  Receipt Date: 20060110
  Transmission Date: 20060701
  Serious: Yes (Hospitalization)
  Sender: FDA-Public Use
  Company Number: 2006AP00152

PATIENT
  Age: 25598 Day
  Sex: Female
  Weight: 57 kg

DRUGS (17)
  1. CRESTOR [Suspect]
     Indication: TYPE IIA HYPERLIPIDAEMIA
     Route: 048
     Dates: start: 20051119, end: 20051202
  2. ASPIRIN [Suspect]
     Indication: ANGINA PECTORIS
     Route: 048
     Dates: start: 20051119, end: 20051202
  3. ACTOS [Suspect]
     Indication: DIABETES MELLITUS
     Route: 048
     Dates: start: 20051122, end: 20051202
  4. ARTIST [Suspect]
     Indication: HYPERTENSION
     Route: 048
     Dates: start: 20051023, end: 20051202
  5. AMARYL [Suspect]
     Indication: DIABETES MELLITUS
     Route: 048
     Dates: start: 20051022, end: 20051202
  6. ISOSORBIDE MONONITRATE [Suspect]
     Indication: ANGINA PECTORIS
     Route: 048
     Dates: start: 20051119, end: 20051202
  7. PANALDINE [Suspect]
     Indication: ANGINA PECTORIS
     Route: 048
     Dates: start: 20051123, end: 20051202
  8. AMOBAN [Suspect]
     Indication: INSOMNIA
     Route: 048
     Dates: start: 20051118, end: 20051202
  9. DAONIL [Concomitant]
     Indication: DIABETES MELLITUS
     Route: 048
     Dates: end: 20051121
  10. HITOCOBAMIN [Concomitant]
     Indication: NEUROPATHY PERIPHERAL
     Route: 048
     Dates: end: 20051130
  11. WARFARIN [Concomitant]
     Indication: ATRIAL FIBRILLATION
     Route: 048
  12. WARFARIN [Concomitant]
     Route: 048
  13. PARAMIDIN [Concomitant]
     Route: 048
  14. VERAPAMIL [Concomitant]
     Indication: TACHYARRHYTHMIA
     Route: 048
  15. VERAPAMIL [Concomitant]
     Route: 048
  16. DEPAS [Concomitant]
     Indication: ANXIETY DISORDER
     Route: 048
  17. DEPAS [Concomitant]
     Route: 048

REACTIONS (2)
  - DRUG ERUPTION [None]
  - STEVENS-JOHNSON SYNDROME [None]
